FAERS Safety Report 9383149 (Version 2)
Quarter: 2013Q3

REPORT INFORMATION
  Report Type: Spontaneous
  Country: AU (occurrence: AU)
  Receive Date: 20130704
  Receipt Date: 20130730
  Transmission Date: 20140515
  Serious: Yes (Other)
  Sender: FDA-Public Use
  Company Number: AU-ROCHE-1242079

PATIENT
  Age: 28 Year
  Sex: Female

DRUGS (13)
  1. CEFTRIAXONE [Suspect]
     Indication: URINARY TRACT DISORDER
     Route: 065
  2. FLUCONAZOLE [Suspect]
     Indication: VULVOVAGINAL CANDIDIASIS
     Route: 065
  3. FLUCONAZOLE [Suspect]
     Indication: VULVITIS
  4. RANITIDINE [Suspect]
     Indication: GASTROINTESTINAL HAEMORRHAGE
     Route: 048
  5. PARACETAMOL [Suspect]
     Indication: SENSORY DISTURBANCE
     Route: 065
  6. PARACETAMOL [Suspect]
     Indication: ANALGESIC THERAPY
  7. AMOXYCILLIN SODIUM [Suspect]
     Indication: URINARY TRACT DISORDER
     Route: 065
  8. AMPICILLIN [Suspect]
     Indication: URINARY TRACT DISORDER
     Route: 065
  9. GENTAMICIN SULPHATE [Suspect]
     Indication: URINARY TRACT DISORDER
     Route: 065
  10. MEROPENEM [Suspect]
     Indication: URINARY TRACT DISORDER
     Route: 065
  11. CEPHALEXIN [Suspect]
     Indication: PRODUCT USED FOR UNKNOWN INDICATION
     Route: 065
  12. ENOXAPARIN [Suspect]
     Indication: PRODUCT USED FOR UNKNOWN INDICATION
     Route: 065
  13. HEPARIN SODIUM [Suspect]
     Indication: PRODUCT USED FOR UNKNOWN INDICATION
     Dosage: 5000U
     Route: 065

REACTIONS (2)
  - Premature rupture of membranes [Unknown]
  - Exposure during pregnancy [Unknown]
